FAERS Safety Report 4971032-X (Version None)
Quarter: 2006Q2

REPORT INFORMATION
  Report Type: 
  Country: None (occurrence: None)
  Receive Date: 20060411
  Receipt Date: 20060411
  Transmission Date: 20061013
  Serious: Yes (Death, Other)
  Sender: FDA-Public Use
  Company Number: None

PATIENT
  Age: 42 Year
  Sex: Male
  Weight: 136.0791 kg

DRUGS (3)
  1. LOTENSIN [Suspect]
     Indication: HYPERTENSION
     Dosage: 10MG TWICE DAILY PO
     Route: 048
     Dates: start: 20040210, end: 20040315
  2. HYDROCHLOROTHIAZIDE [Concomitant]
  3. ZOLOFT [Concomitant]

REACTIONS (1)
  - HEPATIC ENZYME INCREASED [None]
